FAERS Safety Report 23125216 (Version 1)
Quarter: 2023Q4

REPORT INFORMATION
  Report Type: Spontaneous
  Country: US (occurrence: None)
  Receive Date: 20231025
  Receipt Date: 20231025
  Transmission Date: 20240109
  Serious: Yes (Death)
  Sender: FDA-Public Use
  Company Number: None

PATIENT
  Age: 83 Year
  Sex: Male

DRUGS (2)
  1. AMBRISENTAN [Suspect]
     Active Substance: AMBRISENTAN
     Indication: Pulmonary hypertension
     Dosage: FREQUENCY : DAILY;?
     Route: 048
     Dates: start: 20190401, end: 20231003
  2. TADALAFIL [Suspect]
     Active Substance: TADALAFIL

REACTIONS (3)
  - Cardiac failure [None]
  - Respiratory failure [None]
  - Dementia Alzheimer^s type [None]

NARRATIVE: CASE EVENT DATE: 20231003
